FAERS Safety Report 7657256-1 (Version None)
Quarter: 2011Q3

REPORT INFORMATION
  Report Type: 
  Country: None (occurrence: None)
  Receive Date: 20110804
  Receipt Date: 20110722
  Transmission Date: 20111222
  Serious: No
  Sender: FDA-Public Use
  Company Number: US-B.I. PHARMACEUTICALS,INC./RIDGEFIELD-2011-BP-06460BP

PATIENT
  Sex: Male
  Weight: 85.28 kg

DRUGS (12)
  1. OMEPRAZOLE [Concomitant]
  2. ENTEROCORT [Concomitant]
     Dosage: 9 MG
  3. LOSARTAN POTASSIUM [Concomitant]
  4. HYDROCHLOROTHIAZIDE [Concomitant]
  5. LEVOTHYROXINE SODIUM [Concomitant]
  6. SIMVASTATIN [Concomitant]
  7. FLOMAX [Concomitant]
  8. PRADAXA [Suspect]
     Indication: ATRIAL FLUTTER
     Dosage: 300 MG
     Route: 048
     Dates: start: 20110201
  9. ATENOLOL [Concomitant]
  10. ASPIRIN [Concomitant]
     Dosage: 81 MG
  11. PRADAXA [Suspect]
     Indication: ATRIAL FIBRILLATION
     Dosage: 300 MG
     Route: 048
     Dates: start: 20110105
  12. POTASSIUM CHLORIDE [Concomitant]
     Dosage: 20 MG

REACTIONS (3)
  - JOINT SWELLING [None]
  - HAEMATURIA [None]
  - CALCULUS BLADDER [None]
